FAERS Safety Report 8799558 (Version 4)
Quarter: 2012Q4

REPORT INFORMATION
  Report Type: 
  Country: US (occurrence: US)
  Receive Date: 20120919
  Receipt Date: 20121112
  Transmission Date: 20130627
  Serious: Yes (Other)
  Sender: FDA-Public Use
  Company Number: US-PFIZER INC-2012228081

PATIENT
  Age: 94 Year
  Sex: Male

DRUGS (2)
  1. TOVIAZ [Suspect]
     Indication: URINARY INCONTINENCE
     Dosage: 8 mg, 1x/day
     Dates: start: 2012, end: 201210
  2. TOVIAZ [Suspect]
     Dosage: 4 mg, 1x/day
     Route: 048
     Dates: start: 201210, end: 201210

REACTIONS (1)
  - Urinary retention [Unknown]
